FAERS Safety Report 6987412-7 (Version None)
Quarter: 2010Q3

REPORT INFORMATION
  Report Type: 
  Country: None (occurrence: None)
  Receive Date: 20100916
  Receipt Date: 20100908
  Transmission Date: 20110219
  Serious: Yes (Hospitalization)
  Sender: FDA-Public Use
  Company Number: US-BRISTOL-MYERS SQUIBB COMPANY-15042427

PATIENT
  Age: 38 Year
  Sex: Female

DRUGS (6)
  1. ARIPIPRAZOLE [Suspect]
     Indication: SCHIZOPHRENIA
     Dosage: ARIPIPRAZOLE IM DEPOT
     Route: 030
     Dates: start: 20091029, end: 20100218
  2. LORAZEPAM [Concomitant]
     Indication: ANXIETY
     Route: 048
     Dates: start: 20090916
  3. AMOXICILLIN [Concomitant]
     Indication: URINARY TRACT INFECTION
     Route: 048
  4. SEROQUEL [Concomitant]
  5. BUSPAR [Concomitant]
  6. MULTI-VITAMIN [Concomitant]

REACTIONS (1)
  - SCHIZOPHRENIA, PARANOID TYPE [None]
